FAERS Safety Report 5922600-X (Version None)
Quarter: 2008Q4

REPORT INFORMATION
  Report Type: 
  Country: None (occurrence: None)
  Receive Date: 20081017
  Receipt Date: 20081015
  Transmission Date: 20090506
  Serious: Yes (Life-Threatening, Hospitalization, Other)
  Sender: FDA-Public Use
  Company Number: PHEH2008US09259

PATIENT
  Age: 71 Year
  Sex: Female

DRUGS (8)
  1. TEKTURNA [Suspect]
     Indication: HYPERTENSION
     Dosage: 150 MG, QD
     Route: 048
     Dates: start: 20070720
  2. IMDUR [Concomitant]
  3. SYNTHROID [Concomitant]
  4. PRILOSEC [Concomitant]
  5. FORADIL                                 /USA/ [Concomitant]
  6. ZETIA [Concomitant]
  7. SINGULAIR [Concomitant]
  8. TOPROL-XL [Concomitant]

REACTIONS (1)
  - RENAL FAILURE ACUTE [None]
